FAERS Safety Report 7461274-6 (Version None)
Quarter: 2011Q2

REPORT INFORMATION
  Report Type: 
  Country: None (occurrence: None)
  Receive Date: 20110506
  Receipt Date: 20110426
  Transmission Date: 20111010
  Serious: Yes (Hospitalization)
  Sender: FDA-Public Use
  Company Number: US-BIOGENIDEC-2011BI001524

PATIENT
  Age: 55 Year
  Sex: Female

DRUGS (1)
  1. AVONEX [Suspect]
     Indication: MULTIPLE SCLEROSIS
     Route: 030
     Dates: start: 20100521, end: 20100910

REACTIONS (4)
  - MULTIPLE SCLEROSIS RELAPSE [None]
  - THROMBOSIS [None]
  - PULMONARY EMBOLISM [None]
  - ARTHRALGIA [None]
